FAERS Safety Report 9704453 (Version 2)
Quarter: 2014Q3

REPORT INFORMATION
  Report Type: Spontaneous
  Country: US (occurrence: US)
  Receive Date: 20131122
  Receipt Date: 20140909
  Transmission Date: 20150326
  Serious: Yes (Other)
  Sender: FDA-Public Use
  Company Number: US-BAYER-2013-141329

PATIENT
  Age: 23 Year
  Sex: Female
  Weight: 72.56 kg

DRUGS (1)
  1. MIRENA [Suspect]
     Active Substance: LEVONORGESTREL
     Indication: CONTRACEPTION
     Dosage: 20 MCG/24HR, CONT
     Route: 015
     Dates: start: 200003, end: 20001214

REACTIONS (11)
  - Pregnancy with contraceptive device [None]
  - Feeling abnormal [None]
  - Abortion spontaneous [None]
  - Stress [None]
  - Drug ineffective [None]
  - Device issue [None]
  - Genital haemorrhage [None]
  - Anxiety [None]
  - Pain [None]
  - Injury [None]
  - Embedded device [None]

NARRATIVE: CASE EVENT DATE: 200010
